FAERS Safety Report 14729172 (Version 4)
Quarter: 2019Q2

REPORT INFORMATION
  Report Type: Spontaneous
  Country: US (occurrence: US)
  Receive Date: 20180406
  Receipt Date: 20190625
  Transmission Date: 20190711
  Serious: Yes (Other)
  Sender: FDA-Public Use
  Company Number: US-ASTRAZENECA-2018SE40897

PATIENT
  Age: 15897 Day
  Sex: Male

DRUGS (37)
  1. PRILOSEC OTC [Suspect]
     Active Substance: OMEPRAZOLE MAGNESIUM
     Dosage: 20 MG DAILY
     Route: 048
     Dates: start: 20091209, end: 20160414
  2. PREVACID 24 HR [Suspect]
     Active Substance: LANSOPRAZOLE
     Route: 065
     Dates: start: 200601, end: 201608
  3. METFORMIN [Concomitant]
     Active Substance: METFORMIN HYDROCHLORIDE
  4. ZYMAR [Concomitant]
     Active Substance: GATIFLOXACIN
  5. NAPROXEN. [Concomitant]
     Active Substance: NAPROXEN
  6. PROSTAT [Concomitant]
     Active Substance: HERBALS\SAW PALMETTO
  7. ZOFRAN [Concomitant]
     Active Substance: ONDANSETRON HYDROCHLORIDE
  8. AZITHROMYCIN ANHYDROUS. [Concomitant]
     Active Substance: AZITHROMYCIN ANHYDROUS
  9. CLONIDINE. [Concomitant]
     Active Substance: CLONIDINE
  10. PRILOSEC [Suspect]
     Active Substance: OMEPRAZOLE MAGNESIUM
     Dosage: 40 MG DAILY
     Route: 048
     Dates: start: 200601, end: 201608
  11. PROTONIX [Suspect]
     Active Substance: PANTOPRAZOLE SODIUM
     Dosage: 40 MG DAILY GENERIC
     Route: 065
     Dates: start: 20120815, end: 20140718
  12. PROTONIX [Suspect]
     Active Substance: PANTOPRAZOLE SODIUM
     Dosage: 40 MG DAILY
     Route: 065
     Dates: start: 20120904, end: 20120905
  13. HYDROCODONE/ACETAMINOPHEN [Concomitant]
     Active Substance: ACETAMINOPHEN\HYDROCODONE
  14. FLUCONAZOLE. [Concomitant]
     Active Substance: FLUCONAZOLE
  15. WARFARIN [Concomitant]
     Active Substance: WARFARIN
  16. PRILOSEC [Suspect]
     Active Substance: OMEPRAZOLE MAGNESIUM
     Dosage: GENERIC
     Route: 048
     Dates: start: 20120310
  17. FUROSEMIDE. [Concomitant]
     Active Substance: FUROSEMIDE
  18. LISINOPRIL. [Concomitant]
     Active Substance: LISINOPRIL
  19. ASPIRIN. [Concomitant]
     Active Substance: ASPIRIN
  20. GLIPIZIDE. [Concomitant]
     Active Substance: GLIPIZIDE
  21. IBUPROFEN. [Concomitant]
     Active Substance: IBUPROFEN
  22. NOVOLIN [Concomitant]
     Active Substance: INSULIN HUMAN
  23. NEXIUM [Suspect]
     Active Substance: ESOMEPRAZOLE MAGNESIUM
     Route: 048
     Dates: start: 200601, end: 201608
  24. PROTONIX [Suspect]
     Active Substance: PANTOPRAZOLE SODIUM
     Route: 065
     Dates: start: 200601, end: 201608
  25. DEXILANT [Suspect]
     Active Substance: DEXLANSOPRAZOLE
     Route: 065
     Dates: start: 200601, end: 201608
  26. METOPROLOL. [Concomitant]
     Active Substance: METOPROLOL
  27. VANCOMYCIN [Concomitant]
     Active Substance: VANCOMYCIN
  28. EPOGEN [Concomitant]
     Active Substance: ERYTHROPOIETIN
  29. SERTRALINE [Concomitant]
     Active Substance: SERTRALINE HYDROCHLORIDE
  30. NEXIUM 24HR [Suspect]
     Active Substance: ESOMEPRAZOLE MAGNESIUM
     Route: 048
     Dates: start: 200601, end: 201608
  31. PRILOSEC [Suspect]
     Active Substance: OMEPRAZOLE MAGNESIUM
     Dosage: 20 MG DAILY GENERIC
     Route: 048
     Dates: start: 20091209, end: 20160414
  32. PRILOSEC OTC [Suspect]
     Active Substance: OMEPRAZOLE MAGNESIUM
     Dosage: 20 MG DAILY
     Route: 048
     Dates: start: 200601, end: 201608
  33. PREVACID [Suspect]
     Active Substance: LANSOPRAZOLE
     Route: 065
     Dates: start: 200601, end: 201608
  34. GABAPENTIN. [Concomitant]
     Active Substance: GABAPENTIN
  35. ALBUTEROL. [Concomitant]
     Active Substance: ALBUTEROL
  36. SEVELAMER [Concomitant]
     Active Substance: SEVELAMER
  37. HUMULIN NOS [Concomitant]
     Active Substance: INSULIN HUMAN

REACTIONS (4)
  - Chronic kidney disease [Not Recovered/Not Resolved]
  - Renal injury [Unknown]
  - Acute kidney injury [Not Recovered/Not Resolved]
  - End stage renal disease [Not Recovered/Not Resolved]

NARRATIVE: CASE EVENT DATE: 20090210
